FAERS Safety Report 6597830-7 (Version None)
Quarter: 2010Q1

REPORT INFORMATION
  Report Type: 
  Country: None (occurrence: None)
  Receive Date: 20100216
  Receipt Date: 20100129
  Transmission Date: 20100710
  Serious: Yes (Life-Threatening)
  Sender: FDA-Public Use
  Company Number: 1000011696

PATIENT
  Age: 67 Year
  Sex: Female

DRUGS (1)
  1. MILNACIPRAN (MILNACIPRAN HYDROCHLORIDE) (CAPSULES) [Suspect]
     Indication: DEPRESSION
     Dosage: 25 MG, ONCE; ORAL
     Route: 048
     Dates: start: 20100127, end: 20100127

REACTIONS (7)
  - ARRHYTHMIA [None]
  - DISCOMFORT [None]
  - HYPERTENSIVE CRISIS [None]
  - NAUSEA [None]
  - TACHYCARDIA [None]
  - TERMINAL STATE [None]
  - VOMITING [None]
